FAERS Safety Report 6667004-X (Version None)
Quarter: 2010Q2

REPORT INFORMATION
  Report Type: 
  Country: None (occurrence: None)
  Receive Date: 20100405
  Receipt Date: 20100322
  Transmission Date: 20101027
  Serious: Yes (Hospitalization)
  Sender: FDA-Public Use
  Company Number: DE-JNJFOC-20100302320

PATIENT
  Age: 7 Decade
  Sex: Female
  Weight: 60.9 kg

DRUGS (13)
  1. GOLIMUMAB [Suspect]
     Indication: RHEUMATOID ARTHRITIS
     Route: 058
  2. GOLIMUMAB [Suspect]
     Route: 058
  3. METHOTREXATE [Suspect]
     Indication: RHEUMATOID ARTHRITIS
     Route: 048
  4. METHOTREXATE [Suspect]
     Route: 048
  5. METHOTREXATE [Concomitant]
     Route: 048
  6. ACTONEL [Concomitant]
     Route: 048
  7. CALCIUM [Concomitant]
     Route: 048
  8. PREDNISOLONE [Concomitant]
     Route: 048
  9. PREDNISOLONE [Concomitant]
     Route: 048
  10. PREDNISOLONE [Concomitant]
     Route: 048
  11. FOLSAN [Concomitant]
     Route: 048
  12. BONDIOL [Concomitant]
     Route: 048
  13. IBUPROFEN [Concomitant]
     Route: 048

REACTIONS (2)
  - HAEMATURIA [None]
  - WEIGHT DECREASED [None]
